FAERS Safety Report 9672320 (Version 2)
Quarter: 2014Q2

REPORT INFORMATION
  Report Type: Spontaneous
  Country: FR (occurrence: FR)
  Receive Date: 20131106
  Receipt Date: 20140609
  Transmission Date: 20141212
  Serious: Yes (Hospitalization)
  Sender: FDA-Public Use
  Company Number: PHHY2013FR123769

PATIENT
  Age: 50 Year
  Sex: Female

DRUGS (8)
  1. AMOXICILLIN TRIHYDRATE+POTASSIUM CLAVULANATE SANDOZ [Suspect]
     Route: 048
     Dates: start: 20130923, end: 20130927
  2. AMOXICILLINE/ACIDE CLAVULANIQUE PANPHARMA [Suspect]
     Indication: ANTIBIOTIC THERAPY
     Dosage: 2 G, TID
     Route: 042
     Dates: start: 20130920, end: 20130923
  3. LERCAN [Concomitant]
     Dosage: 10 MG, QD
     Route: 065
  4. TAHOR [Concomitant]
     Dosage: 10 MG, QD
     Route: 065
  5. ALDACTONE [Concomitant]
     Dosage: 75 MG, QD
     Route: 065
  6. TRIATEC [Concomitant]
     Dosage: 10 MG, QD
     Route: 065
  7. SINGULAIR [Concomitant]
     Dosage: 10 MG, QD
     Route: 065
  8. XYZALL [Concomitant]
     Dosage: 1 DF, QD
     Route: 065

REACTIONS (1)
  - Drug reaction with eosinophilia and systemic symptoms [Recovered/Resolved]
